FAERS Safety Report 8836279 (Version 2)
Quarter: 2012Q4

REPORT INFORMATION
  Report Type: Report from Study
  Country: US (occurrence: US)
  Receive Date: 20121011
  Receipt Date: 20121129
  Transmission Date: 20130627
  Serious: Yes (Hospitalization, Other)
  Sender: FDA-Public Use
  Company Number: US-ABBOTT-12P-163-0992005-00

PATIENT
  Sex: Female
  Weight: 54.03 kg

DRUGS (4)
  1. HUMIRA [Suspect]
     Indication: PSORIATIC ARTHROPATHY
     Dates: start: 201001
  2. LEXAPRO [Concomitant]
     Indication: DEPRESSION
  3. LISINOPRIL [Concomitant]
     Indication: HYPERTENSION
  4. XANAX [Concomitant]
     Indication: ANXIETY

REACTIONS (20)
  - Osteonecrosis [Unknown]
  - Fall [Recovered/Resolved]
  - Road traffic accident [Unknown]
  - Haemorrhage [Unknown]
  - Mallory-Weiss syndrome [Unknown]
  - Mallory-Weiss syndrome [Unknown]
  - Arthralgia [Unknown]
  - Weight bearing difficulty [Unknown]
  - Arthralgia [Unknown]
  - Psoriasis [Unknown]
  - Psoriasis [Unknown]
  - Balance disorder [Unknown]
  - Peripheral circulatory failure [Unknown]
  - Neuropathy peripheral [Unknown]
  - Pelvic fracture [Recovered/Resolved]
  - Foot deformity [Unknown]
  - Device malfunction [Unknown]
  - Drug dose omission [Unknown]
  - Osteoporosis [Unknown]
  - Psoriasis [Unknown]
